FAERS Safety Report 4468876-X (Version None)
Quarter: 2004Q4

REPORT INFORMATION
  Report Type: 
  Country: None (occurrence: None)
  Receive Date: 20041008
  Receipt Date: 20040930
  Transmission Date: 20050328
  Serious: Yes (Hospitalization)
  Sender: FDA-Public Use
  Company Number: US-JNJFOC-20041000441

PATIENT
  Sex: Female

DRUGS (21)
  1. INFLIXIMAB [Suspect]
     Indication: RHEUMATOID ARTHRITIS
     Dosage: 5 VIALS EVERY MONTH
     Route: 042
  2. ARAVA [Concomitant]
  3. ASPIRIN [Concomitant]
  4. CENSATIN [Concomitant]
  5. CALCIUM +D [Concomitant]
  6. ACTONEL [Concomitant]
  7. ACETAMINOPHEN W/ CODEINE [Concomitant]
  8. ACETAMINOPHEN W/ CODEINE [Concomitant]
  9. BEXTRA [Concomitant]
  10. ULTRACET [Concomitant]
  11. KLOR-CON [Concomitant]
  12. MULTI-VITAMIN [Concomitant]
  13. MULTI-VITAMIN [Concomitant]
  14. MULTI-VITAMIN [Concomitant]
  15. MULTI-VITAMIN [Concomitant]
  16. MULTI-VITAMIN [Concomitant]
  17. MULTI-VITAMIN [Concomitant]
  18. MULTI-VITAMIN [Concomitant]
  19. MULTI-VITAMIN [Concomitant]
  20. ZOLOFT [Concomitant]
  21. FOLIC ACID [Concomitant]

REACTIONS (4)
  - ABDOMINAL PAIN [None]
  - ANASTOMOTIC ULCER [None]
  - HAEMOGLOBIN ABNORMAL [None]
  - MELAENA [None]
